FAERS Safety Report 16741298 (Version 1)
Quarter: 2019Q3

REPORT INFORMATION
  Report Type: Spontaneous
  Country: US (occurrence: US)
  Receive Date: 20190826
  Receipt Date: 20190826
  Transmission Date: 20191005
  Serious: Yes (Other)
  Sender: FDA-Public Use
  Company Number: US-CATALYST PHARMACEUTICALS, INC-2019CAT00342

PATIENT
  Age: 59 Year
  Sex: Female
  Weight: 49.89 kg

DRUGS (4)
  1. FIRDAPSE [Suspect]
     Active Substance: AMIFAMPRIDINE
     Indication: MYASTHENIC SYNDROME
     Dosage: 15 MG, 3X/DAY
     Route: 048
     Dates: start: 20190301, end: 201907
  2. FIRDAPSE [Suspect]
     Active Substance: AMIFAMPRIDINE
     Dosage: 15 MG, 3X/DAY
     Dates: start: 201907
  3. UNSPECIFIED ^CHEMO^ [Suspect]
     Active Substance: UNSPECIFIED INGREDIENT
     Dosage: UNK
  4. UNSPECIFIED ^CHEMO^ [Suspect]
     Active Substance: UNSPECIFIED INGREDIENT
     Dosage: UNK
     Dates: start: 2019, end: 2019

REACTIONS (1)
  - Neuropathy peripheral [Not Recovered/Not Resolved]

NARRATIVE: CASE EVENT DATE: 201904
